FAERS Safety Report 10244473 (Version 1)
Quarter: 2014Q2

REPORT INFORMATION
  Report Type: Spontaneous
  Country: US (occurrence: None)
  Receive Date: 20140617
  Receipt Date: 20140617
  Transmission Date: 20141212
  Serious: No
  Sender: FDA-Public Use
  Company Number: 2014CT000044

PATIENT
  Age: 52 Year
  Sex: Male

DRUGS (9)
  1. KORLYM [Suspect]
     Indication: PITUITARY-DEPENDENT CUSHING^S SYNDROME
     Route: 048
     Dates: start: 20140404
  2. FLECAINIDE [Concomitant]
  3. ATENOLOL [Concomitant]
  4. FARXIGA [Concomitant]
  5. BYDUREON [Concomitant]
  6. ASPIRIN [Concomitant]
  7. LEVOTHYROXINE [Concomitant]
  8. CITALOPRAM [Concomitant]
  9. LOSARTAN [Concomitant]

REACTIONS (6)
  - Feeling drunk [None]
  - Gait disturbance [None]
  - Heart rate increased [None]
  - Abdominal pain upper [None]
  - Musculoskeletal chest pain [None]
  - Nausea [None]
